FAERS Safety Report 9656624 (Version 1)
Quarter: 2013Q4

REPORT INFORMATION
  Report Type: Spontaneous
  Country: US (occurrence: US)
  Receive Date: 20131030
  Receipt Date: 20131030
  Transmission Date: 20140711
  Serious: Yes (Other)
  Sender: FDA-Public Use
  Company Number: US-ASTELLAS-2013US011132

PATIENT
  Sex: Male

DRUGS (1)
  1. XTANDI [Suspect]
     Indication: BLADDER CANCER
     Dosage: 160 MG, UID/QD
     Route: 048
     Dates: start: 20130909

REACTIONS (3)
  - Off label use [Unknown]
  - Blood glucose decreased [Unknown]
  - Fatigue [Unknown]
